FAERS Safety Report 7345423-6 (Version None)
Quarter: 2011Q1

REPORT INFORMATION
  Report Type: 
  Country: None (occurrence: None)
  Receive Date: 20110310
  Receipt Date: 20110228
  Transmission Date: 20110831
  Serious: Yes (Other)
  Sender: FDA-Public Use
  Company Number: US-SANOFI-AVENTIS-2011SA012825

PATIENT

DRUGS (1)
  1. PLAVIX [Suspect]
     Indication: STENT PLACEMENT
     Route: 065

REACTIONS (2)
  - COLON CANCER [None]
  - HAEMORRHAGE [None]
